FAERS Safety Report 9353104 (Version 1)
Quarter: 2013Q2

REPORT INFORMATION
  Report Type: Spontaneous
  Country: GB (occurrence: GB)
  Receive Date: 20130618
  Receipt Date: 20130618
  Transmission Date: 20140414
  Serious: Yes (Hospitalization)
  Sender: FDA-Public Use
  Company Number: GB-MYLANLABS-2013S1012500

PATIENT
  Age: 73 Year
  Sex: Male

DRUGS (9)
  1. AZATHIOPRINE [Suspect]
     Indication: IMMUNOSUPPRESSANT DRUG THERAPY
     Route: 065
  2. PREDNISOLONE [Concomitant]
     Dosage: THEN 15MG ONCE DAILY
     Route: 065
  3. PREDNISOLONE [Concomitant]
     Route: 065
  4. COTRIMOXAZOLE [Concomitant]
     Indication: PROPHYLAXIS
     Route: 065
  5. LISINOPRIL [Concomitant]
     Route: 065
  6. GLICLAZIDE [Concomitant]
     Route: 065
  7. FOLIC ACID [Concomitant]
     Route: 065
  8. HYDROXOCOBALAMIN [Concomitant]
     Dosage: 1000 MICROG/3 MONTHLY
     Route: 065
  9. RANITIDINE [Concomitant]
     Route: 065

REACTIONS (1)
  - Drug hypersensitivity [Recovered/Resolved]
